FAERS Safety Report 16533983 (Version 1)
Quarter: 2019Q3

REPORT INFORMATION
  Report Type: Spontaneous
  Country: US (occurrence: US)
  Receive Date: 20190705
  Receipt Date: 20190705
  Transmission Date: 20191004
  Serious: No
  Sender: FDA-Public Use
  Company Number: US-TARO-2019TAR00446

PATIENT
  Sex: Female
  Weight: 64.4 kg

DRUGS (3)
  1. ADAPALENE GEL 0.3% [Suspect]
     Active Substance: ADAPALENE
     Dosage: ^A PEA SIZED AMOUNT^, 3X/WEEK AT BEDTIME
     Route: 061
     Dates: start: 201905
  2. ADAPALENE GEL 0.3% [Suspect]
     Active Substance: ADAPALENE
     Dosage: ^A PEA SIZED AMOUNT^, 3X/WEEK AT BEDTIME
     Route: 061
     Dates: start: 2018
  3. ADAPALENE GEL 0.3% [Suspect]
     Active Substance: ADAPALENE
     Indication: ACNE
     Dosage: ^A PEA SIZED AMOUNT^, 3X/WEEK AT BEDTIME
     Route: 061
     Dates: start: 201905

REACTIONS (4)
  - Inappropriate schedule of product administration [Not Recovered/Not Resolved]
  - Product quality issue [Not Recovered/Not Resolved]
  - Acne [Not Recovered/Not Resolved]
  - Drug ineffective [Not Recovered/Not Resolved]

NARRATIVE: CASE EVENT DATE: 2018
